FAERS Safety Report 16387452 (Version 2)
Quarter: 2019Q4

REPORT INFORMATION
  Report Type: Spontaneous
  Country: CN (occurrence: CN)
  Receive Date: 20190604
  Receipt Date: 20191016
  Transmission Date: 20200122
  Serious: Yes (Other)
  Sender: FDA-Public Use
  Company Number: CN-SUN PHARMACEUTICAL INDUSTRIES LTD-2019R1-209761

PATIENT
  Age: 59 Year
  Sex: Female

DRUGS (2)
  1. IMATINIB. [Suspect]
     Active Substance: IMATINIB MESYLATE
     Dosage: 400 MILLIGRAM, DAILY
     Route: 065
     Dates: start: 20140820, end: 201711
  2. IMATINIB. [Suspect]
     Active Substance: IMATINIB MESYLATE
     Indication: CHRONIC MYELOID LEUKAEMIA
     Dosage: 400 MILLIGRAM, DAILY
     Route: 065
     Dates: start: 2010, end: 201202

REACTIONS (6)
  - White blood cell count decreased [Recovered/Resolved]
  - Platelet count increased [Recovered/Resolved]
  - Drug resistance [Unknown]
  - Gene mutation [Unknown]
  - Treatment failure [Unknown]
  - Pyrexia [Unknown]

NARRATIVE: CASE EVENT DATE: 20171108
